FAERS Safety Report 16809246 (Version 4)
Quarter: 2019Q3

REPORT INFORMATION
  Report Type: Spontaneous
  Country: FR (occurrence: FR)
  Receive Date: 20190916
  Receipt Date: 20190920
  Transmission Date: 20191005
  Serious: Yes (Hospitalization)
  Sender: FDA-Public Use
  Company Number: PHHY2019FR209910

PATIENT
  Age: 15 Year
  Sex: Female
  Weight: 45 kg

DRUGS (3)
  1. PARACETAMOL [Suspect]
     Active Substance: ACETAMINOPHEN
     Indication: ABDOMINAL PAIN
     Dosage: 3 G, PRN
     Route: 048
     Dates: start: 20190815, end: 20190816
  2. KETOPROFEN. [Suspect]
     Active Substance: KETOPROFEN
     Indication: ABDOMINAL PAIN
     Dosage: 9 DF, PRN
     Route: 048
     Dates: start: 20190816, end: 20190816
  3. DICLOFENAC [Suspect]
     Active Substance: DICLOFENAC
     Indication: ABDOMINAL PAIN
     Dosage: 10 DF, PRN (AS NECESSARY)
     Route: 048
     Dates: start: 20190816, end: 20190816

REACTIONS (5)
  - Abdominal pain upper [Recovered/Resolved]
  - Medication error [Recovered/Resolved]
  - Drug level increased [Recovered/Resolved]
  - Incorrect dose administered [Recovered/Resolved]
  - Overdose [Recovered/Resolved]

NARRATIVE: CASE EVENT DATE: 20190816
